FAERS Safety Report 25249193 (Version 1)
Quarter: 2025Q2

REPORT INFORMATION
  Report Type: Spontaneous
  Country: IT (occurrence: IT)
  Receive Date: 20250429
  Receipt Date: 20250429
  Transmission Date: 20250717
  Serious: Yes (Other)
  Sender: RANBAXY
  Company Number: IT-SUN PHARMACEUTICAL INDUSTRIES LTD-2025RR-505676

PATIENT
  Age: 68 Year
  Sex: Male

DRUGS (3)
  1. CAPECITABINE [Suspect]
     Active Substance: CAPECITABINE
     Indication: Cholangiocarcinoma
     Dosage: 500 MILLIGRAM, BID
     Route: 065
  2. GEMCITABINE [Suspect]
     Active Substance: GEMCITABINE
     Indication: Cholangiocarcinoma
     Route: 065
  3. CABOZANTINIB [Suspect]
     Active Substance: CABOZANTINIB
     Indication: Neoplasm malignant
     Dosage: 60 MILLIGRAM, DAILY
     Route: 065

REACTIONS (4)
  - Platelet count decreased [Unknown]
  - Disease progression [Unknown]
  - Haematotoxicity [Unknown]
  - Treatment delayed [Unknown]
